FAERS Safety Report 6707232-8 (Version None)
Quarter: 2010Q2

REPORT INFORMATION
  Report Type: 
  Country: None (occurrence: None)
  Receive Date: 20100503
  Receipt Date: 20090413
  Transmission Date: 20101027
  Serious: No
  Sender: FDA-Public Use
  Company Number: US-ASTRAZENECA-2009UW01519

PATIENT
  Age: 21674 Day
  Sex: Male
  Weight: 90.7 kg

DRUGS (5)
  1. NEXIUM [Suspect]
     Indication: GASTROOESOPHAGEAL REFLUX DISEASE
     Route: 048
  2. VERAPAMIL [Concomitant]
  3. ATIVAN [Concomitant]
  4. ASPIRIN [Concomitant]
  5. ZOCOR [Concomitant]

REACTIONS (2)
  - NAUSEA [None]
  - PRODUCT QUALITY ISSUE [None]
